FAERS Safety Report 8202601-1 (Version None)
Quarter: 2012Q1

REPORT INFORMATION
  Report Type: 
  Country: None (occurrence: None)
  Receive Date: 20120312
  Receipt Date: 20120306
  Transmission Date: 20120608
  Serious: No
  Sender: FDA-Public Use
  Company Number: US-NAPPMUNDI-USA-2012-0083131

PATIENT
  Sex: Male

DRUGS (2)
  1. BUTRANS [Suspect]
     Indication: PAIN
     Dosage: 5 MCG/HR, WEEKLY
     Dates: start: 20110101, end: 20110916
  2. BUTRANS [Suspect]
     Dosage: 10 MCG/HR, WEEKLY

REACTIONS (1)
  - INCORRECT DOSE ADMINISTERED [None]
